FAERS Safety Report 9490497 (Version 1)
Quarter: 2013Q3

REPORT INFORMATION
  Report Type: Spontaneous
  Country: US (occurrence: None)
  Receive Date: 20130827
  Receipt Date: 20130827
  Transmission Date: 20140515
  Serious: Yes (Other)
  Sender: FDA-Public Use
  Company Number: None

PATIENT
  Age: 61 None
  Sex: Female
  Weight: 68.04 kg

DRUGS (8)
  1. VIVELLE DOT [Suspect]
     Indication: MENOPAUSAL SYMPTOMS
     Dosage: .05 MG/24HR 1 APPLIED PATCH ONCE WEEKLY PATCH APPLIED TO ABDOMINAL SKIN
     Route: 062
     Dates: start: 1998, end: 20130630
  2. VIVELLE DOT [Suspect]
     Indication: HOT FLUSH
     Dosage: .05 MG/24HR 1 APPLIED PATCH ONCE WEEKLY PATCH APPLIED TO ABDOMINAL SKIN
     Route: 062
     Dates: start: 1998, end: 20130630
  3. ADVIL [Concomitant]
  4. MULTIVITAMIN [Concomitant]
  5. CALCIUM SUPPLEMENT [Concomitant]
  6. FIBER PILL [Concomitant]
  7. STOOL SOFTENER [Concomitant]
  8. FLUTICASONE PROPIONATE (^FLONASE^) [Concomitant]

REACTIONS (4)
  - Product quality issue [None]
  - Hot flush [None]
  - Product quality issue [None]
  - Incorrect dose administered by device [None]
